FAERS Safety Report 23118276 (Version 1)
Quarter: 2023Q4

REPORT INFORMATION
  Report Type: Other
  Country: CN (occurrence: None)
  Receive Date: 20231027
  Receipt Date: 20231027
  Transmission Date: 20240109
  Serious: Yes (Other)
  Sender: FDA-Public Use
  Company Number: CN-ROCHE-3446692

PATIENT
  Sex: Female

DRUGS (6)
  1. TRASTUZUMAB [Suspect]
     Active Substance: TRASTUZUMAB
     Indication: HER2 positive breast cancer
     Route: 041
  2. TRASTUZUMAB [Suspect]
     Active Substance: TRASTUZUMAB
     Route: 041
  3. PERTUZUMAB [Suspect]
     Active Substance: PERTUZUMAB
     Indication: HER2 positive breast cancer
     Route: 058
  4. PERTUZUMAB [Suspect]
     Active Substance: PERTUZUMAB
     Route: 058
  5. DOCETAXEL [Suspect]
     Active Substance: DOCETAXEL
     Indication: HER2 positive breast cancer
     Route: 065
  6. CARBOPLATIN [Suspect]
     Active Substance: CARBOPLATIN
     Indication: HER2 positive breast cancer
     Route: 065

REACTIONS (12)
  - Nausea [Unknown]
  - Vomiting [Unknown]
  - Myelosuppression [Unknown]
  - Fatigue [Unknown]
  - Palpitations [Unknown]
  - Rash [Unknown]
  - Pruritus [Unknown]
  - Insomnia [Unknown]
  - Musculoskeletal pain [Unknown]
  - Hypoaesthesia [Unknown]
  - Diarrhoea [Unknown]
  - Constipation [Unknown]
